FAERS Safety Report 4492784-1 (Version None)
Quarter: 2004Q4

REPORT INFORMATION
  Report Type: 
  Country: None (occurrence: None)
  Receive Date: 20041029
  Receipt Date: 20041015
  Transmission Date: 20050328
  Serious: Yes (Hospitalization)
  Sender: FDA-Public Use
  Company Number: CERZ-10686

PATIENT
  Age: 6 Year
  Sex: Female
  Weight: 12.4 kg

DRUGS (10)
  1. CEREZYME [Suspect]
     Indication: GAUCHER'S DISEASE
     Dosage: 600 UNITS Q2WKS IV
     Route: 042
     Dates: start: 20010315
  2. CLONAZEPAM [Concomitant]
  3. ZONISAMIDE [Concomitant]
  4. DANTROLENE SODIUM [Concomitant]
  5. DIAZEPAM [Concomitant]
  6. TRICLOFOS SODIUM [Concomitant]
  7. CARBOCYSTEINE [Concomitant]
  8. AMBROXOL HYDROCHLORIDE [Concomitant]
  9. SODIUM/POTASSIUM/MAGNESIUM SUPPLEMENT [Concomitant]
  10. MOSAPRIDE CITRATE [Concomitant]

REACTIONS (4)
  - BLOOD AMYLASE INCREASED [None]
  - EYE DISCHARGE [None]
  - HYPOKALAEMIA [None]
  - RESPIRATORY FAILURE [None]
